FAERS Safety Report 5345352-3 (Version None)
Quarter: 2007Q2

REPORT INFORMATION
  Report Type: 
  Country: None (occurrence: None)
  Receive Date: 20070601
  Receipt Date: 20070522
  Transmission Date: 20071010
  Serious: Yes (Death)
  Sender: FDA-Public Use
  Company Number: 2007MP000251

PATIENT

DRUGS (1)
  1. DECITABINE (DECITABINE) [Suspect]

REACTIONS (7)
  - APLASIA [None]
  - CELLULITIS [None]
  - EXOPHTHALMOS [None]
  - INFLAMMATION [None]
  - NASAL NECROSIS [None]
  - NEUTROPENIA [None]
  - PYREXIA [None]
